FAERS Safety Report 4943866-9 (Version None)
Quarter: 2006Q1

REPORT INFORMATION
  Report Type: 
  Country: None (occurrence: None)
  Receive Date: 20060310
  Receipt Date: 20060306
  Transmission Date: 20060701
  Serious: Yes (Death)
  Sender: FDA-Public Use
  Company Number: TCI2006A01074

PATIENT
  Age: 78 Year
  Sex: Female

DRUGS (23)
  1. ACTOS [Suspect]
     Indication: DIABETES MELLITUS
     Dosage: 15 MG (15 MG, 1 D), PER ORAL
     Route: 048
     Dates: start: 20060107, end: 20060303
  2. MICARDIS [Concomitant]
  3. ADALAT [Concomitant]
  4. ISOSORBIDE DINITRATE [Concomitant]
  5. LASIX [Concomitant]
  6. EUGLUCON (GLIBENCLAMIDE) [Concomitant]
  7. NORVASC [Concomitant]
  8. EPADEL (ETHYL ICOSAPENTATE) [Concomitant]
  9. MOHRUS (KETOPROFEN) [Concomitant]
  10. ROHYPNOL (FLUNITRAZEPAM) [Concomitant]
  11. LIMAS (LITHIUM CARBONATE) [Concomitant]
  12. CETAPRIL (ALACEPRIL) [Concomitant]
  13. SLOW-K [Concomitant]
  14. OPALMON (LIMAPROST) [Concomitant]
  15. LACTOSE [Concomitant]
  16. ERIMIN (NIMETAZEPAM) [Concomitant]
  17. LAXOBERON (SODIUM PICOSULFATE) [Concomitant]
  18. MUCOSTA (REBAMIPIDE) [Concomitant]
  19. MINZAIN (TRIAZOLAM) [Concomitant]
  20. ALLOPURINOL [Concomitant]
  21. MAGNESIUM OXIDE [Concomitant]
  22. PRAVASTATIN [Concomitant]
  23. SHAKUYAKUKANZOUTOU (SHAKUYAKUKANZOUTOU) [Concomitant]

REACTIONS (2)
  - CARDIAC FAILURE ACUTE [None]
  - FALL [None]
